FAERS Safety Report 7658329-X (Version None)
Quarter: 2011Q3

REPORT INFORMATION
  Report Type: 
  Country: None (occurrence: None)
  Receive Date: 20110804
  Receipt Date: 20110804
  Transmission Date: 20111222
  Serious: Yes (Hospitalization)
  Sender: FDA-Public Use
  Company Number: None

PATIENT
  Age: 65 Year
  Sex: Male
  Weight: 70.4 kg

DRUGS (1)
  1. WARFARIN SODIUM [Suspect]
     Indication: CARDIAC VALVE PROSTHESIS USER
     Dates: start: 19800101, end: 20110802

REACTIONS (3)
  - CHEST PAIN [None]
  - GASTRIC HAEMORRHAGE [None]
  - HAEMOGLOBIN DECREASED [None]
